FAERS Safety Report 5391002-X (Version None)
Quarter: 2007Q3

REPORT INFORMATION
  Report Type: 
  Country: None (occurrence: None)
  Receive Date: 20070716
  Receipt Date: 20070703
  Transmission Date: 20080115
  Serious: Yes (Hospitalization)
  Sender: FDA-Public Use
  Company Number: US020186

PATIENT
  Age: 50 Year
  Sex: Male
  Weight: 115.6672 kg

DRUGS (13)
  1. ACTIQ [Suspect]
     Indication: PAIN
     Dosage: 1200 UG BID BUCCAL
     Route: 002
     Dates: start: 20040101, end: 20061001
  2. ACTIQ [Suspect]
     Indication: PAIN
     Dosage: 200 UG BID BUCCAL
     Route: 002
     Dates: start: 20061001
  3. MS CONTIN [Concomitant]
  4. SKELAXIN [Concomitant]
  5. CELEBREX [Concomitant]
  6. NEURONTIN [Concomitant]
  7. LORAZEPAM [Concomitant]
  8. AMBIEN [Concomitant]
  9. MIRALAX [Concomitant]
  10. MSIR [Concomitant]
  11. LIDODERM [Concomitant]
  12. ATIVAN [Concomitant]
  13. CYMBALTA [Concomitant]

REACTIONS (14)
  - AMNESIA [None]
  - CARDIAC ARREST [None]
  - DEEP VEIN THROMBOSIS [None]
  - GASTRIC HAEMORRHAGE [None]
  - GINGIVAL PAIN [None]
  - OVERDOSE [None]
  - PNEUMONIA [None]
  - POST PROCEDURAL HAEMORRHAGE [None]
  - PULMONARY EMBOLISM [None]
  - RESPIRATORY FAILURE [None]
  - THROMBOSIS [None]
  - TOOTH LOSS [None]
  - UNEVALUABLE EVENT [None]
  - WEIGHT INCREASED [None]
